FAERS Safety Report 7030053-6 (Version None)
Quarter: 2010Q4

REPORT INFORMATION
  Report Type: 
  Country: None (occurrence: None)
  Receive Date: 20101006
  Receipt Date: 20100927
  Transmission Date: 20110411
  Serious: Yes (Other)
  Sender: FDA-Public Use
  Company Number: RU-SOLVAY-00310005931

PATIENT
  Age: 54 Year
  Sex: Female
  Weight: 70 kg

DRUGS (6)
  1. AMITRIPTYLINE HCL [Concomitant]
     Indication: NEUROSIS
     Dosage: DAILY DOSE:  UNKNOWN
     Route: 048
     Dates: start: 20100212, end: 20100219
  2. DALARGIN [Concomitant]
     Indication: GASTRITIS EROSIVE
     Dosage: DAILY DOSE:  UNKNOWN
     Route: 058
     Dates: start: 20100210, end: 20100219
  3. CLARITHROMYCIN [Concomitant]
     Indication: ANTIBIOTIC THERAPY
     Dosage: DAILY DOSE:  UNKNOWN
     Route: 048
     Dates: start: 20100210, end: 20100219
  4. AMOXICILLIN [Concomitant]
     Indication: ANTIBIOTIC THERAPY
     Dosage: DAILY DOSE:  UNKNOWN
     Route: 048
     Dates: start: 20100210, end: 20100219
  5. OMEPRAZOLE [Concomitant]
     Indication: ANTIBIOTIC THERAPY
     Dosage: DAILY DOSE:  UNKNOWN
     Route: 048
     Dates: start: 20100210, end: 20100219
  6. CREON [Suspect]
     Indication: PANCREATITIS CHRONIC
     Dosage: DAILY DOSE: 30000 UNITS, UNIT DOSE: 10000 UNITS, FREQUENCY: THREE TIMES A DAY
     Route: 048
     Dates: start: 20100215, end: 20100218

REACTIONS (1)
  - LIP OEDEMA [None]
